FAERS Safety Report 16911213 (Version 1)
Quarter: 2019Q4

REPORT INFORMATION
  Report Type: Spontaneous
  Country: US (occurrence: US)
  Receive Date: 20190821
  Receipt Date: 20190821
  Transmission Date: 20200122
  Serious: Yes (Hospitalization)
  Sender: FDA-Public Use
  Company Number: None

PATIENT
  Age: 60 Year
  Sex: Male

DRUGS (2)
  1. ELIQUIS [Concomitant]
     Active Substance: APIXABAN
  2. ALECENSA [Suspect]
     Active Substance: ALECTINIB HYDROCHLORIDE
     Route: 048
     Dates: start: 20190226

REACTIONS (2)
  - Tumour compression [None]
  - Spinal cord compression [None]

NARRATIVE: CASE EVENT DATE: 20190813
